FAERS Safety Report 9813109 (Version 2)
Quarter: 2014Q1

REPORT INFORMATION
  Report Type: Spontaneous
  Country: SE (occurrence: None)
  Receive Date: 20140109
  Receipt Date: 20140313
  Transmission Date: 20141002
  Serious: Yes (Other)
  Sender: FDA-Public Use
  Company Number: SYM-2013-14407

PATIENT
  Age: 69 Year
  Sex: Male

DRUGS (9)
  1. ZYBAN [Suspect]
     Indication: PRODUCT USED FOR UNKNOWN INDICATION
     Dosage: 2 IN 1 D
     Dates: start: 20130930, end: 20131013
  2. METFORMIN HYDROCHLORIDE (METFORMIN HYDROCHLORIDE) (METFORMIN HYDROCHLORIDE) [Concomitant]
  3. CLOPIDOGREL (CLOPIDOGREL) (CLOPIDOGREL) [Concomitant]
  4. NORMORIX (MODURETIC) (HYDROCHLOROTHIAZIDE, AMILORIDE HYDROCHLORIDE) [Concomitant]
  5. METOPROLOL (METOPROLOL) (METOPROLOL) [Concomitant]
  6. FELODIPINE (FELODIPINE) (FELODIPINE) [Concomitant]
  7. ENALAPRIL (ENALAPRIL) (ENALAPRIL) [Concomitant]
  8. ATORVASTATIN (ATORVASTATIN) (ATORVASTATIN) [Concomitant]
  9. PROPAVAN (PROPIOMAZINE MALEATE (PROPIOMAZINE MALEATE) [Concomitant]

REACTIONS (12)
  - Malaise [None]
  - Nightmare [None]
  - Vomiting [None]
  - Coordination abnormal [None]
  - Fatigue [None]
  - Cerebrovascular accident [None]
  - Blood potassium abnormal [None]
  - Blood creatinine abnormal [None]
  - White blood cell count abnormal [None]
  - Haemoglobin abnormal [None]
  - Muscular weakness [None]
  - Asthenia [None]
